FAERS Safety Report 19467444 (Version 1)
Quarter: 2021Q2

REPORT INFORMATION
  Report Type: Spontaneous
  Country: US (occurrence: US)
  Receive Date: 20210627
  Receipt Date: 20210627
  Transmission Date: 20210717
  Serious: Yes (Other)
  Sender: FDA-Public Use
  Company Number: None

PATIENT
  Sex: Female

DRUGS (2)
  1. NORDITROPIN [Suspect]
     Active Substance: SOMATROPIN
     Indication: GIGANTISM
     Route: 058
     Dates: start: 20180307
  2. NORDITROPIN [Suspect]
     Active Substance: SOMATROPIN
     Indication: ACROMEGALY
     Route: 058
     Dates: start: 20180307

REACTIONS (2)
  - Therapy cessation [None]
  - Abdominal distension [None]
